FAERS Safety Report 23494698 (Version 1)
Quarter: 2024Q1

REPORT INFORMATION
  Report Type: Spontaneous
  Country: US (occurrence: None)
  Receive Date: 20240206
  Receipt Date: 20240206
  Transmission Date: 20240410
  Serious: Yes (Life-Threatening, Other)
  Sender: FDA-Public Use
  Company Number: None

PATIENT
  Age: 42 Year
  Sex: Female
  Weight: 86.4 kg

DRUGS (13)
  1. QULIPTA [Suspect]
     Active Substance: ATOGEPANT
     Indication: Migraine
     Dosage: FREQUENCY : DAILY;?
     Route: 048
     Dates: start: 20240204, end: 20240204
  2. SPIRONOLACTONE [Concomitant]
     Active Substance: SPIRONOLACTONE
  3. allerga [Concomitant]
  4. CLARITIN [Concomitant]
     Active Substance: LORATADINE
  5. XOLAIR [Concomitant]
     Active Substance: OMALIZUMAB
  6. VITAMIN D3 [Concomitant]
     Active Substance: CHOLECALCIFEROL
  7. Vit K complex [Concomitant]
  8. COD LIVER OIL [Concomitant]
     Active Substance: COD LIVER OIL
  9. Kelp pills [Concomitant]
  10. Selenium compound (with vit E) [Concomitant]
  11. ALPHA LIPOIC ACID [Concomitant]
     Active Substance: .ALPHA.-LIPOIC ACID
  12. TAURINE [Concomitant]
     Active Substance: TAURINE
  13. PROBIOTICS NOS [Concomitant]
     Active Substance: PROBIOTICS NOS

REACTIONS (7)
  - Pruritus [None]
  - Cough [None]
  - Peripheral swelling [None]
  - Mouth swelling [None]
  - Swollen tongue [None]
  - Pharyngeal swelling [None]
  - Nasal oedema [None]

NARRATIVE: CASE EVENT DATE: 20240204
